FAERS Safety Report 20429944 (Version 1)
Quarter: 2022Q1

REPORT INFORMATION
  Report Type: Report from Study
  Country: FR (occurrence: FR)
  Receive Date: 20220204
  Receipt Date: 20220204
  Transmission Date: 20220424
  Serious: Yes (Hospitalization)
  Sender: FDA-Public Use
  Company Number: FR-SERVIER-S19003615

PATIENT

DRUGS (10)
  1. ONCASPAR [Suspect]
     Active Substance: PEGASPARGASE
     Indication: Acute lymphocytic leukaemia
     Dosage: 1725 IU UNK
     Route: 042
     Dates: start: 20190109
  2. CORTICOSTEROID NOS [Suspect]
     Active Substance: CORTICOSTEROID NOS
     Indication: Acute lymphocytic leukaemia
     Dosage: UNK
     Route: 048
  3. TN UNSPECIFIED [Concomitant]
     Indication: Acute lymphocytic leukaemia
     Dosage: 700 MG UNK
     Route: 042
     Dates: start: 20181226
  4. TN UNSPECIFIED [Concomitant]
     Indication: Acute lymphocytic leukaemia
     Dosage: 30 MG UNK
     Route: 037
     Dates: start: 20181228
  5. TN UNSPECIFIED [Concomitant]
     Dosage: 52.5 MG UNK
     Route: 042
     Dates: start: 20181228
  6. TN UNSPECIFIED [Concomitant]
     Indication: Acute lymphocytic leukaemia
     Dosage: 12 MG UNK
     Route: 037
     Dates: start: 20181228
  7. TN UNSPECIFIED [Concomitant]
     Indication: Acute lymphocytic leukaemia
     Dosage: 15 MG UNK
     Route: 037
     Dates: start: 20181228
  8. TN UNSPECIFIED [Concomitant]
     Indication: Acute lymphocytic leukaemia
     Dosage: 50 MG UNK
     Route: 048
     Dates: start: 20181226
  9. TN UNSPECIFIED [Concomitant]
     Indication: Acute lymphocytic leukaemia
     Dosage: 1.05 MG, (D15)
     Route: 042
     Dates: start: 20190109, end: 20190109
  10. BACTRIM [Concomitant]
     Active Substance: SULFAMETHOXAZOLE\TRIMETHOPRIM
     Indication: Infection prophylaxis
     Dosage: 490 MG, QD
     Route: 048
     Dates: start: 20181226

REACTIONS (3)
  - Hyperbilirubinaemia [Recovered/Resolved]
  - Gamma-glutamyltransferase increased [Not Recovered/Not Resolved]
  - Cholestasis [Recovered/Resolved]

NARRATIVE: CASE EVENT DATE: 20190109
